FAERS Safety Report 8455809-4 (Version None)
Quarter: 2012Q2

REPORT INFORMATION
  Report Type: 
  Country: None (occurrence: None)
  Receive Date: 20120323
  Receipt Date: 20110919
  Transmission Date: 20120825
  Serious: Yes (Hospitalization)
  Sender: FDA-Public Use
  Company Number: 163-21880-11092251

PATIENT
  Age: 50 Year
  Sex: Female
  Weight: 65.3 kg

DRUGS (7)
  1. VELCADE [Concomitant]
  2. ACYCLOVIR [Concomitant]
  3. DILAUDID [Concomitant]
  4. ASPIRIN [Concomitant]
  5. REVLIMID [Suspect]
     Indication: MULTIPLE MYELOMA
     Dosage: 25 MG, DAILY FOR 14 DAYS, PO
     Route: 048
     Dates: start: 20110620, end: 20110801
  6. PEPCID [Concomitant]
  7. DEXAMETHASONE [Concomitant]

REACTIONS (2)
  - MULTIPLE MYELOMA [None]
  - BONE PAIN [None]
